FAERS Safety Report 9768083 (Version 1)
Quarter: 2013Q4

REPORT INFORMATION
  Report Type: Spontaneous
  Country: IN (occurrence: IN)
  Receive Date: 20131217
  Receipt Date: 20131217
  Transmission Date: 20140711
  Serious: Yes (Other)
  Sender: FDA-Public Use
  Company Number: IN-UCBSA-106152

PATIENT
  Age: 56 Year
  Sex: Male

DRUGS (3)
  1. LEVETIRACETAM [Suspect]
     Indication: STATUS EPILEPTICUS
     Dosage: LOADING DOSE 25MG/KG
     Route: 042
  2. LEVETIRACETAM [Suspect]
     Indication: STATUS EPILEPTICUS
     Route: 048
  3. OXCARBAZEPINE [Concomitant]
     Indication: PARTIAL SEIZURES

REACTIONS (2)
  - Encephalopathy [Recovered/Resolved]
  - Partial seizures [Recovered/Resolved]
